FAERS Safety Report 8473171-8 (Version None)
Quarter: 2012Q2

REPORT INFORMATION
  Report Type: 
  Country: None (occurrence: None)
  Receive Date: 20120627
  Receipt Date: 20120620
  Transmission Date: 20120825
  Serious: Yes (Other)
  Sender: FDA-Public Use
  Company Number: CHPA2012US013244

PATIENT
  Sex: Female

DRUGS (1)
  1. VOLTAREN [Suspect]
     Indication: ARTHROPATHY
     Dosage: A LITTLE BIT, UNK
     Route: 061

REACTIONS (2)
  - ARTHRITIS [None]
  - OFF LABEL USE [None]
